FAERS Safety Report 18551965 (Version 1)
Quarter: 2020Q4

REPORT INFORMATION
  Report Type: Spontaneous
  Country: US (occurrence: US)
  Receive Date: 20201126
  Receipt Date: 20201126
  Transmission Date: 20210114
  Serious: Yes (Other)
  Sender: FDA-Public Use
  Company Number: US-JNJFOC-20201132999

PATIENT
  Age: 48 Year
  Sex: Female
  Weight: 66.2 kg

DRUGS (2)
  1. STELARA [Suspect]
     Active Substance: USTEKINUMAB
     Indication: RHEUMATIC DISORDER
     Dosage: 50 MG
     Route: 058
     Dates: end: 202008
  2. STELARA [Suspect]
     Active Substance: USTEKINUMAB
     Indication: OSTEOARTHRITIS

REACTIONS (6)
  - Joint swelling [Not Recovered/Not Resolved]
  - Peripheral swelling [Not Recovered/Not Resolved]
  - Knee arthroplasty [Recovered/Resolved with Sequelae]
  - Off label use [Unknown]
  - Product use in unapproved indication [Unknown]
  - Nausea [Not Recovered/Not Resolved]

NARRATIVE: CASE EVENT DATE: 20200120
